FAERS Safety Report 5711176-8 (Version None)
Quarter: 2008Q2

REPORT INFORMATION
  Report Type: 
  Country: None (occurrence: None)
  Receive Date: 20080421
  Receipt Date: 20080416
  Transmission Date: 20081010
  Serious: Yes (Death, Life-Threatening, Hospitalization, Disabling, Other)
  Sender: FDA-Public Use
  Company Number: US-JNJFOC-20071203282

PATIENT
  Sex: Female
  Weight: 76.2 kg

DRUGS (7)
  1. TMC125 [Suspect]
     Route: 048
  2. TMC125 [Suspect]
     Indication: HIV INFECTION
     Route: 048
  3. PREZISTA [Concomitant]
     Indication: HIV INFECTION
     Route: 048
  4. REYATAZ [Concomitant]
     Indication: HIV INFECTION
     Route: 048
  5. NORVIR [Concomitant]
     Indication: HIV INFECTION
     Route: 048
  6. INVIRASE [Concomitant]
     Indication: HIV INFECTION
     Route: 048
  7. TRUVADA [Concomitant]
     Indication: HIV INFECTION
     Route: 048

REACTIONS (1)
  - LUNG ADENOCARCINOMA [None]
